FAERS Safety Report 5399518-7 (Version None)
Quarter: 2007Q3

REPORT INFORMATION
  Report Type: 
  Country: None (occurrence: None)
  Receive Date: 20070727
  Receipt Date: 20070716
  Transmission Date: 20080115
  Serious: Yes (Hospitalization, Disabling, Other)
  Sender: FDA-Public Use
  Company Number: US-PFIZER INC-2006117003

PATIENT
  Sex: Female
  Weight: 68 kg

DRUGS (6)
  1. CELEBREX [Suspect]
     Indication: ARTHRITIS
  2. VIOXX [Suspect]
     Indication: CARPAL TUNNEL SYNDROME
     Dates: start: 20000225, end: 20010824
  3. VIOXX [Suspect]
     Indication: ARTHRITIS
  4. ZOCOR [Concomitant]
     Indication: BLOOD CHOLESTEROL INCREASED
     Dates: start: 20010516, end: 20030101
  5. PERCOCET [Concomitant]
     Indication: PAIN
     Dates: start: 20010601, end: 20011101
  6. OXYCODONE HCL [Concomitant]
     Indication: PAIN
     Dates: start: 20010828, end: 20011101

REACTIONS (3)
  - CARDIAC FAILURE CONGESTIVE [None]
  - CARDIOVASCULAR DISORDER [None]
  - MYOCARDIAL INFARCTION [None]
